FAERS Safety Report 5604733-0 (Version None)
Quarter: 2008Q1

REPORT INFORMATION
  Report Type: 
  Country: None (occurrence: None)
  Receive Date: 20080128
  Receipt Date: 20080117
  Transmission Date: 20080703
  Serious: Yes (Hospitalization)
  Sender: FDA-Public Use
  Company Number: US-JNJFOC-20080105077

PATIENT
  Sex: Female
  Weight: 68.04 kg

DRUGS (12)
  1. DURAGESIC-100 [Suspect]
     Route: 062
  2. DURAGESIC-100 [Suspect]
     Indication: PAIN
     Route: 062
  3. FENTANYL TRANSDERMAL SYSTEM [Suspect]
     Indication: PAIN
     Route: 062
  4. ASPIRIN [Concomitant]
     Route: 048
  5. TOPAMAX [Concomitant]
     Route: 048
  6. LEXAPRO [Concomitant]
     Dosage: ONE TABLET IN THE MORNING
     Route: 048
  7. PROTONIX [Concomitant]
     Dosage: ONE TABLET IN THE AFTERNOON
     Route: 048
  8. FOSRENOL [Concomitant]
     Route: 048
  9. HYDROCODONE BITARTRATE [Concomitant]
     Indication: PAIN
     Dosage: 10/500MG TABLETS AS NEEDED
     Route: 048
  10. CLONAZEPAM [Concomitant]
     Dosage: HALF A TABLET IN THE AFTERNOON
     Route: 048
  11. COLCHICINE [Concomitant]
     Indication: GOUT
     Route: 048
  12. LACTULOSE [Concomitant]
     Indication: CONSTIPATION
     Route: 048

REACTIONS (4)
  - DRUG INEFFECTIVE [None]
  - INFECTION [None]
  - RENAL FAILURE [None]
  - WRONG TECHNIQUE IN DRUG USAGE PROCESS [None]
